FAERS Safety Report 6964837-7 (Version None)
Quarter: 2010Q3

REPORT INFORMATION
  Report Type: 
  Country: None (occurrence: None)
  Receive Date: 20100903
  Receipt Date: 20100727
  Transmission Date: 20110219
  Serious: Yes (Other)
  Sender: FDA-Public Use
  Company Number: KR-BRISTOL-MYERS SQUIBB COMPANY-15263676

PATIENT
  Age: 29 Year
  Sex: Male

DRUGS (9)
  1. METFORMIN HCL [Suspect]
  2. IRBESARTAN [Suspect]
  3. AMLODIPINE BESYLATE [Suspect]
  4. ASPIRIN [Suspect]
  5. CARVEDILOL [Suspect]
  6. GLYBURIDE [Suspect]
  7. HYDROCHLOROTHIAZIDE [Suspect]
  8. RAMIPRIL [Suspect]
  9. TRIAZOLAM [Suspect]

REACTIONS (4)
  - CAESAREAN SECTION [None]
  - DRUG EXPOSURE DURING PREGNANCY [None]
  - NORMAL NEWBORN [None]
  - PREGNANCY [None]
